FAERS Safety Report 8293772-X (Version None)
Quarter: 2012Q2

REPORT INFORMATION
  Report Type: 
  Country: None (occurrence: None)
  Receive Date: 20120413
  Receipt Date: 20120405
  Transmission Date: 20120825
  Serious: Yes (Hospitalization)
  Sender: FDA-Public Use
  Company Number: ADR-2006-3275

PATIENT
  Sex: Female

DRUGS (10)
  1. COPAXONE [Concomitant]
  2. AMITRIPTYLINE HCL [Concomitant]
  3. ORAL BACLOFEN [Concomitant]
  4. LIORESAL [Suspect]
     Indication: MUSCLE SPASTICITY
     Dosage: 500 MCG, DAILY, INTRATH
     Route: 037
  5. KLONOPIN [Concomitant]
  6. SYNTHROID [Concomitant]
  7. TOPROL-XL [Concomitant]
  8. NEURONTIN [Concomitant]
  9. CEFTRIAXONE [Concomitant]
  10. VANCOMYCIN [Concomitant]

REACTIONS (18)
  - WITHDRAWAL SYNDROME [None]
  - MALAISE [None]
  - HEADACHE [None]
  - MUSCULOSKELETAL STIFFNESS [None]
  - NAUSEA [None]
  - PYREXIA [None]
  - DECREASED APPETITE [None]
  - HYPERHIDROSIS [None]
  - VOMITING [None]
  - MUSCLE SPASMS [None]
  - ASTHENIA [None]
  - GAIT DISTURBANCE [None]
  - MENINGITIS [None]
  - PHOTOSENSITIVITY REACTION [None]
  - CSF CELL COUNT ABNORMAL [None]
  - CSF GLUCOSE ABNORMAL [None]
  - CSF PROTEIN ABNORMAL [None]
  - THERAPEUTIC RESPONSE DECREASED [None]
